FAERS Safety Report 7537091-5 (Version None)
Quarter: 2011Q2

REPORT INFORMATION
  Report Type: 
  Country: None (occurrence: None)
  Receive Date: 20110609
  Receipt Date: 20110531
  Transmission Date: 20111010
  Serious: Yes (Hospitalization)
  Sender: FDA-Public Use
  Company Number: PHBS2005BR13444

PATIENT
  Age: 33 Year
  Sex: Male
  Weight: 86 kg

DRUGS (5)
  1. TEGRETOL-XR [Suspect]
     Dosage: 400 MG, TID
     Route: 048
  2. VIMPAT [Concomitant]
     Indication: EPILEPSY
     Dosage: 50 MG, 2 TABLETS DAILY ORAL
  3. TOPAMAX [Concomitant]
     Indication: CONVULSION
     Dosage: 50 UKN, UNK
  4. TEGRETOL [Suspect]
     Indication: EPILEPSY
     Dosage: 3 DF, UNK
     Route: 048
     Dates: start: 19880101
  5. TEGRETOL-XR [Suspect]
     Dosage: 400 MG, 2 TABLETS DAILY
     Route: 048

REACTIONS (4)
  - TOXICITY TO VARIOUS AGENTS [None]
  - DRUG LEVEL INCREASED [None]
  - CONVULSION [None]
  - DRUG EXPOSURE DURING PREGNANCY [None]
